FAERS Safety Report 10184664 (Version 1)
Quarter: 2014Q2

REPORT INFORMATION
  Report Type: Spontaneous
  Country: CA (occurrence: None)
  Receive Date: 20140519
  Receipt Date: 20140519
  Transmission Date: 20141212
  Serious: Yes (Other)
  Sender: FDA-Public Use
  Company Number: 2337808

PATIENT
  Sex: Female

DRUGS (1)
  1. LIDOCAINE HCL [Suspect]
     Indication: PRODUCT USED FOR UNKNOWN INDICATION
     Dosage: NOT REPORTED, UNKNOWN, TOPICAL
     Route: 061
     Dates: start: 2014

REACTIONS (4)
  - Device breakage [None]
  - Product label issue [None]
  - Foreign body [None]
  - Wrong technique in drug usage process [None]
